FAERS Safety Report 6355449-7 (Version None)
Quarter: 2009Q3

REPORT INFORMATION
  Report Type: 
  Country: None (occurrence: None)
  Receive Date: 20090914
  Receipt Date: 20090907
  Transmission Date: 20100115
  Serious: Yes (Other)
  Sender: FDA-Public Use
  Company Number: PHHY2009NL38103

PATIENT
  Sex: Male

DRUGS (7)
  1. NEORAL [Suspect]
     Indication: COLITIS
     Dosage: 400 MG, BID
     Dates: start: 20020218, end: 20020508
  2. AZATHIOPRINE [Suspect]
     Indication: COLITIS
     Dosage: 200 MG, QD
     Dates: start: 20020101, end: 20030911
  3. PREDNISOLONE [Suspect]
     Indication: COLITIS
     Dosage: 5 MG
     Dates: start: 20000101
  4. FLIXOTIDE [Concomitant]
     Dosage: 1 DF, BID
     Dates: start: 20050202
  5. SEREVENT [Concomitant]
     Dosage: 2 DF, BID
     Dates: start: 20041122, end: 20070116
  6. VIAGRA [Concomitant]
     Dosage: 25 MG TIMER PER NECESSARY
     Dates: start: 20051227, end: 20080304
  7. ALENDRONIC ACID [Concomitant]
     Dosage: 70 MG,  ONE TIME PER WEEK
     Dates: start: 20030515

REACTIONS (2)
  - ARTHROPATHY [None]
  - OSTEONECROSIS [None]
